FAERS Safety Report 4591772-4 (Version None)
Quarter: 2005Q1

REPORT INFORMATION
  Report Type: 
  Country: None (occurrence: None)
  Receive Date: 20050125
  Receipt Date: 20040816
  Transmission Date: 20050727
  Serious: No
  Sender: FDA-Public Use
  Company Number: USA040875706

PATIENT
  Age: 79 Year
  Sex: Female

DRUGS (4)
  1. FORTEO [Suspect]
     Dosage: 20 UG DAY
     Dates: start: 20040802
  2. PRAVACHOL [Concomitant]
  3. IMIPRAMINE [Concomitant]
  4. VITAMINS [Concomitant]

REACTIONS (1)
  - ALOPECIA [None]
